FAERS Safety Report 12320571 (Version 2)
Quarter: 2016Q2

REPORT INFORMATION
  Report Type: Spontaneous
  Country: DE (occurrence: DE)
  Receive Date: 20160429
  Receipt Date: 20160621
  Transmission Date: 20160815
  Serious: Yes (Other)
  Sender: FDA-Public Use
  Company Number: DE-GILEAD-2016-0211042

PATIENT
  Age: 35 Year
  Sex: Male

DRUGS (8)
  1. BUPRENORPHINE. [Concomitant]
     Active Substance: BUPRENORPHINE
     Dosage: 24 MG, UNK
     Route: 065
  2. ZOPICLON [Concomitant]
     Active Substance: ZOPICLONE
     Indication: PRODUCT USED FOR UNKNOWN INDICATION
     Dosage: 7.5 UNKNOWN, UNK
     Route: 048
     Dates: start: 20160426
  3. HARVONI [Suspect]
     Active Substance: LEDIPASVIR\SOFOSBUVIR
     Indication: HEPATITIS C
     Dosage: UNK UNKNOWN, UNK
     Route: 048
     Dates: start: 20160325, end: 20160525
  4. BUPRENORPHINE. [Concomitant]
     Active Substance: BUPRENORPHINE
     Dosage: 16 MG, UNK
     Route: 065
  5. COCAINE [Suspect]
     Active Substance: COCAINE
     Indication: PRODUCT USED FOR UNKNOWN INDICATION
     Dosage: UNK UNKNOWN, UNK
     Route: 045
  6. ALCOHOL. [Suspect]
     Active Substance: ALCOHOL
     Indication: PRODUCT USED FOR UNKNOWN INDICATION
     Dosage: 50 G, UNK
     Route: 048
  7. BUPRENORPHINE. [Concomitant]
     Active Substance: BUPRENORPHINE
     Indication: DRUG WITHDRAWAL MAINTENANCE THERAPY
     Dosage: 8 MG, UNK
     Route: 048
  8. RIVOTRIL [Concomitant]
     Active Substance: CLONAZEPAM
     Indication: UNEVALUABLE EVENT
     Dosage: 2 MG, QD
     Route: 048
     Dates: start: 20160427

REACTIONS (9)
  - Agitation [Unknown]
  - Vomiting [Recovered/Resolved]
  - Fatigue [Unknown]
  - Alcohol poisoning [Not Recovered/Not Resolved]
  - Delusional disorder, unspecified type [Recovering/Resolving]
  - Antisocial behaviour [Recovered/Resolved]
  - Psychotic disorder [Unknown]
  - Aggression [Unknown]
  - Nausea [Recovered/Resolved]
